FAERS Safety Report 23465365 (Version 2)
Quarter: 2024Q1

REPORT INFORMATION
  Report Type: Spontaneous
  Country: BE (occurrence: BE)
  Receive Date: 20240201
  Receipt Date: 20240209
  Transmission Date: 20240409
  Serious: Yes (Death, Other)
  Sender: FDA-Public Use
  Company Number: BE-VIGILIT-597581

PATIENT
  Age: 17 Year
  Sex: Male

DRUGS (2)
  1. TRAMADOL [Suspect]
     Active Substance: TRAMADOL\TRAMADOL HYDROCHLORIDE
     Indication: Product used for unknown indication
     Dosage: DRUG OVERDOSE
     Route: 048
  2. CETIRIZINE [Concomitant]
     Active Substance: CETIRIZINE HYDROCHLORIDE
     Dosage: UNK
     Route: 065

REACTIONS (9)
  - Respiratory depression [Fatal]
  - Completed suicide [Fatal]
  - Drug level increased [Fatal]
  - Respiratory failure [Fatal]
  - Foaming at mouth [Fatal]
  - Acute pulmonary oedema [Fatal]
  - Intentional overdose [Fatal]
  - Overdose [Fatal]
  - Drug abuse [Unknown]
